FAERS Safety Report 14982755 (Version 1)
Quarter: 2018Q2

REPORT INFORMATION
  Report Type: Other
  Country: IN (occurrence: IN)
  Receive Date: 20180607
  Receipt Date: 20180607
  Transmission Date: 20180711
  Serious: Yes (Other)
  Sender: FDA-Public Use
  Company Number: IN-AJANTA PHARMA USA INC.-2049109

PATIENT
  Age: 22 Year
  Sex: Female

DRUGS (1)
  1. ARIPIPRAZOLE (ANDA 206174) [Suspect]
     Active Substance: ARIPIPRAZOLE
     Indication: SCHIZOPHRENIA

REACTIONS (1)
  - Pseudomyopia [Recovered/Resolved]

NARRATIVE: CASE EVENT DATE: 20170926
